FAERS Safety Report 5896064-9 (Version None)
Quarter: 2008Q3

REPORT INFORMATION
  Report Type: 
  Country: None (occurrence: None)
  Receive Date: 20080924
  Receipt Date: 20080911
  Transmission Date: 20090109
  Serious: Yes (Other)
  Sender: FDA-Public Use
  Company Number: GB-BAUSCH-2008BL003952

PATIENT
  Age: 27 Year
  Sex: Male

DRUGS (7)
  1. PILOCARPINE [Suspect]
     Indication: INTRAOCULAR PRESSURE INCREASED
     Route: 047
     Dates: start: 20000101
  2. TIMOLOL [Suspect]
     Indication: INTRAOCULAR PRESSURE INCREASED
     Route: 047
     Dates: start: 20000101
  3. DORZOLAMIDE [Suspect]
     Indication: INTRAOCULAR PRESSURE INCREASED
     Route: 047
     Dates: start: 20000101
  4. LATANOPROST [Suspect]
     Indication: INTRAOCULAR PRESSURE INCREASED
     Route: 047
     Dates: start: 20000101
  5. ATROPINE [Suspect]
     Indication: CYCLOPLEGIA
     Route: 047
  6. ATROPINE [Suspect]
     Indication: EYE INFLAMMATION
     Route: 047
  7. ACETAZOLAMIDE [Suspect]
     Indication: INTRAOCULAR PRESSURE INCREASED
     Route: 048

REACTIONS (4)
  - ANGLE CLOSURE GLAUCOMA [None]
  - DRUG INEFFECTIVE [None]
  - HYPHAEMA [None]
  - IRIDOCYCLITIS [None]
